FAERS Safety Report 15584952 (Version 4)
Quarter: 2018Q4

REPORT INFORMATION
  Report Type: Report from Study
  Country: CN (occurrence: CN)
  Receive Date: 20181102
  Receipt Date: 20181214
  Transmission Date: 20190205
  Serious: Yes (Hospitalization)
  Sender: FDA-Public Use
  Company Number: CN-TAKEDA-2018TUS031528

PATIENT
  Age: 42 Year
  Sex: Female
  Weight: 35 kg

DRUGS (25)
  1. PINAVERIUM BROMIDE [Concomitant]
     Active Substance: PINAVERIUM BROMIDE
     Indication: PAIN
     Dosage: 50 MG, TID
     Route: 048
     Dates: start: 20180622
  2. PINAVERIUM BROMIDE [Concomitant]
     Active Substance: PINAVERIUM BROMIDE
     Dosage: 50 MG, QD
     Route: 048
     Dates: start: 20180904, end: 20180904
  3. POTASSIUM CHLORIDE. [Concomitant]
     Active Substance: POTASSIUM CHLORIDE
     Dosage: 1 G, UNK
     Route: 042
     Dates: start: 20180904, end: 20180904
  4. RABEPRAZOLE SODIUM. [Concomitant]
     Active Substance: RABEPRAZOLE SODIUM
     Dosage: 280 MG, UNK
     Route: 048
     Dates: start: 20180914, end: 20180914
  5. POTASSIUM CHLORIDE. [Concomitant]
     Active Substance: POTASSIUM CHLORIDE
     Dosage: 1 G, UNK
     Route: 042
     Dates: start: 20180907, end: 20180907
  6. POTASSIUM CHLORIDE. [Concomitant]
     Active Substance: POTASSIUM CHLORIDE
     Dosage: 2 G, UNK
     Route: 042
     Dates: start: 20181102, end: 20181102
  7. PINAVERIUM BROMIDE [Concomitant]
     Active Substance: PINAVERIUM BROMIDE
     Dosage: 50 MG, TID
     Route: 048
     Dates: start: 20180907, end: 20180908
  8. GLUCOSE [Concomitant]
     Active Substance: DEXTROSE
     Dosage: 250 ML, UNK
     Route: 042
     Dates: start: 20181031, end: 20181031
  9. VEDOLIZUMAB [Suspect]
     Active Substance: VEDOLIZUMAB
     Indication: CROHN^S DISEASE
     Dosage: UNK
     Route: 042
     Dates: start: 20180525, end: 20180901
  10. RABEPRAZOLE SODIUM. [Concomitant]
     Active Substance: RABEPRAZOLE SODIUM
     Indication: GASTRIC DISORDER
     Dosage: 20 MG, QD
     Route: 048
     Dates: start: 20171229
  11. PINAVERIUM BROMIDE [Concomitant]
     Active Substance: PINAVERIUM BROMIDE
     Dosage: 50 MG, BID
     Route: 048
     Dates: start: 20180904, end: 20180907
  12. POTASSIUM CHLORIDE. [Concomitant]
     Active Substance: POTASSIUM CHLORIDE
     Dosage: 1 G, UNK
     Route: 042
     Dates: start: 20181031, end: 20181031
  13. POTASSIUM CHLORIDE. [Concomitant]
     Active Substance: POTASSIUM CHLORIDE
     Dosage: 2 G, UNK
     Route: 042
     Dates: start: 20181104, end: 20181104
  14. GLUCOSE [Concomitant]
     Active Substance: DEXTROSE
     Indication: PARENTERAL NUTRITION
     Dosage: 250 ML, UNK
     Route: 042
     Dates: start: 20180904, end: 20180904
  15. GLUCOSE [Concomitant]
     Active Substance: DEXTROSE
     Dosage: 250 ML, UNK
     Route: 042
     Dates: start: 20180905, end: 20180905
  16. GLUCOSE [Concomitant]
     Active Substance: DEXTROSE
     Dosage: 500 ML, UNK
     Route: 042
     Dates: start: 20181101, end: 20181101
  17. RABEPRAZOLE SODIUM. [Concomitant]
     Active Substance: RABEPRAZOLE SODIUM
     Dosage: 10 MG, QD
     Route: 048
     Dates: start: 20181029, end: 20181030
  18. POTASSIUM CHLORIDE. [Concomitant]
     Active Substance: POTASSIUM CHLORIDE
     Indication: PARENTERAL NUTRITION
     Dosage: 1 G, UNK
     Route: 042
     Dates: start: 20180903, end: 20180903
  19. POTASSIUM CHLORIDE. [Concomitant]
     Active Substance: POTASSIUM CHLORIDE
     Dosage: 1 G, UNK
     Route: 042
     Dates: start: 20180905, end: 20180905
  20. POTASSIUM CHLORIDE. [Concomitant]
     Active Substance: POTASSIUM CHLORIDE
     Dosage: 2 G, UNK
     Route: 042
     Dates: start: 20181030, end: 20181030
  21. GLUCOSE [Concomitant]
     Active Substance: DEXTROSE
     Dosage: 250 ML, UNK
     Route: 042
     Dates: start: 20181104, end: 20181104
  22. POTASSIUM CHLORIDE. [Concomitant]
     Active Substance: POTASSIUM CHLORIDE
     Dosage: 2 G, UNK
     Route: 042
     Dates: start: 20181101, end: 20181101
  23. RABEPRAZOLE SODIUM. [Concomitant]
     Active Substance: RABEPRAZOLE SODIUM
     Dosage: 70 MG, QD
     Route: 048
     Dates: start: 20180903, end: 20180903
  24. POTASSIUM CHLORIDE. [Concomitant]
     Active Substance: POTASSIUM CHLORIDE
     Dosage: UNK
  25. GLUCOSE [Concomitant]
     Active Substance: DEXTROSE
     Dosage: 250 ML, UNK
     Route: 042
     Dates: start: 20181102, end: 20181102

REACTIONS (1)
  - Abdominal pain [Recovered/Resolved]

NARRATIVE: CASE EVENT DATE: 20181029
